FAERS Safety Report 4963482-2 (Version None)
Quarter: 2006Q1

REPORT INFORMATION
  Report Type: 
  Country: None (occurrence: None)
  Receive Date: 20060329
  Receipt Date: 20060213
  Transmission Date: 20060701
  Serious: Yes (Hospitalization, Other)
  Sender: FDA-Public Use
  Company Number: 2006BH000685

PATIENT
  Age: 82 Year
  Sex: Female

DRUGS (6)
  1. POLYGAM S/D [Suspect]
     Indication: DEMYELINATING POLYNEUROPATHY
     Dosage: SEE IMAGE
     Route: 042
  2. CYCLOSPORINE [Concomitant]
  3. MELPHALAN [Concomitant]
  4. PREDNISONE [Concomitant]
  5. SOLU-CORTEF [Concomitant]
  6. TYLENOL (CAPLET) [Concomitant]

REACTIONS (22)
  - ASPIRATION BONE MARROW ABNORMAL [None]
  - BLOOD IMMUNOGLOBULIN M INCREASED [None]
  - BLOOD UREA INCREASED [None]
  - CEREBRAL ARTERY OCCLUSION [None]
  - CEREBRAL INFARCTION [None]
  - CHRONIC INFLAMMATORY DEMYELINATING POLYRADICULONEUROPATHY [None]
  - CONDITION AGGRAVATED [None]
  - DEHYDRATION [None]
  - DYSARTHRIA [None]
  - FACIAL PALSY [None]
  - GAZE PALSY [None]
  - GENERAL PHYSICAL HEALTH DETERIORATION [None]
  - GLOBULINS INCREASED [None]
  - HAEMATOCRIT DECREASED [None]
  - HEMIPARESIS [None]
  - HYPERPROTEINAEMIA [None]
  - HYPOAESTHESIA [None]
  - HYPOTENSION [None]
  - INFUSION RELATED REACTION [None]
  - ISCHAEMIC STROKE [None]
  - LETHARGY [None]
  - LIGHT CHAIN ANALYSIS INCREASED [None]
